FAERS Safety Report 6247975-6 (Version None)
Quarter: 2009Q2

REPORT INFORMATION
  Report Type: 
  Country: None (occurrence: None)
  Receive Date: 20090626
  Receipt Date: 20090618
  Transmission Date: 20091009
  Serious: Yes (Hospitalization)
  Sender: FDA-Public Use
  Company Number: VE-BAYER-200917684LA

PATIENT
  Age: 27 Year
  Sex: Female

DRUGS (1)
  1. MAGNEVISTAN [Suspect]
     Indication: NUCLEAR MAGNETIC RESONANCE IMAGING
     Dosage: TOTAL DAILY DOSE: 15 ML
     Route: 042
     Dates: start: 20090617, end: 20090617

REACTIONS (3)
  - NASAL CONGESTION [None]
  - NAUSEA [None]
  - TREMOR [None]
